FAERS Safety Report 4959151-5 (Version None)
Quarter: 2006Q1

REPORT INFORMATION
  Report Type: 
  Country: None (occurrence: None)
  Receive Date: 20060331
  Receipt Date: 20060112
  Transmission Date: 20060701
  Serious: Yes (Death)
  Sender: FDA-Public Use
  Company Number: GB-BRISTOL-MYERS SQUIBB COMPANY-13245733

PATIENT
  Age: 64 Year
  Sex: Female
  Weight: 69 kg

DRUGS (8)
  1. CISPLATIN [Suspect]
     Indication: ENDOMETRIAL CANCER
     Route: 042
     Dates: start: 20051207, end: 20051207
  2. ADRIAMYCIN PFS [Suspect]
     Indication: ENDOMETRIAL CANCER
     Dates: start: 20051207, end: 20051207
  3. PREDNISOLONE [Concomitant]
  4. DEXAMETHASONE TAB [Concomitant]
  5. ACETAMINOPHEN [Concomitant]
  6. LACTULOSE [Concomitant]
  7. METOCLOPRAMIDE [Concomitant]
  8. MST [Concomitant]

REACTIONS (4)
  - CIRCULATORY COLLAPSE [None]
  - MALIGNANT NEOPLASM PROGRESSION [None]
  - RESPIRATORY ARREST [None]
  - SEPSIS [None]
